FAERS Safety Report 4629464-5 (Version None)
Quarter: 2005Q2

REPORT INFORMATION
  Report Type: 
  Country: None (occurrence: None)
  Receive Date: 20050405
  Receipt Date: 20050325
  Transmission Date: 20051028
  Serious: Yes (Disabling)
  Sender: FDA-Public Use
  Company Number: 2005045568

PATIENT
  Age: 70 Year
  Sex: Male

DRUGS (8)
  1. LIPITOR [Suspect]
     Indication: HYPERLIPIDAEMIA
     Dosage: 10 MG (1 D), ORAL
     Route: 048
     Dates: start: 20050308, end: 20050313
  2. ASPIRIN [Concomitant]
  3. TICLOPIDINE (TICLOPIDINE) [Concomitant]
  4. INSULIN ASPART (INSULIN ASPART) [Concomitant]
  5. IMIDAPRIL HYDROCHLORIDE (IMIDAPRIL HYDROCHLORIDE) [Concomitant]
  6. LANSOPRAZOLE [Concomitant]
  7. AMLODIPINE BESYLATE [Concomitant]
  8. AZOSEMIDE (AZOSEMIDE) [Concomitant]

REACTIONS (4)
  - BLOOD GLUCOSE ABNORMAL [None]
  - CONDITION AGGRAVATED [None]
  - VISUAL ACUITY REDUCED [None]
  - VITREOUS HAEMORRHAGE [None]
